FAERS Safety Report 13772553 (Version 2)
Quarter: 2017Q3

REPORT INFORMATION
  Report Type: Spontaneous
  Country: US (occurrence: US)
  Receive Date: 20170720
  Receipt Date: 20170804
  Transmission Date: 20171127
  Serious: Yes (Other)
  Sender: FDA-Public Use
  Company Number: US-BAYER-2017-137573

PATIENT
  Age: 48 Year
  Sex: Female
  Weight: 66 kg

DRUGS (10)
  1. OMEGA 3 [Concomitant]
     Active Substance: OMEGA-3 FATTY ACIDS
     Dosage: 1 DF, QD
  2. BETASERON [Suspect]
     Active Substance: INTERFERON BETA-1B
     Indication: MULTIPLE SCLEROSIS
     Dosage: UNK UNK, TIW
  3. TYSABRI [Suspect]
     Active Substance: NATALIZUMAB
     Indication: ATAXIA
  4. UNISOM [DIPHENHYDRAMINE HYDROCHLORIDE] [Concomitant]
     Dosage: UNK
  5. UNISOM 2 [Concomitant]
     Active Substance: DOXYLAMINE SUCCINATE
  6. PROVIGIL [Concomitant]
     Active Substance: MODAFINIL
     Dosage: 1 DF, BID
  7. AMPYRA [Suspect]
     Active Substance: DALFAMPRIDINE
     Indication: MULTIPLE SCLEROSIS
     Dosage: 10 MG, BID
     Route: 048
     Dates: start: 20150413
  8. REBIF [Suspect]
     Active Substance: INTERFERON BETA-1A
     Dosage: 44 ?G, TID
     Route: 058
  9. TYSABRI [Suspect]
     Active Substance: NATALIZUMAB
     Indication: URINARY TRACT INFECTION
     Dosage: 15 ML, Q3WK
  10. VITAMIN D [Concomitant]
     Active Substance: CHOLECALCIFEROL
     Dosage: 1 DF, QD

REACTIONS (25)
  - Dyskinesia [None]
  - Dysstasia [None]
  - Fall [None]
  - Dry mouth [None]
  - Balance disorder [None]
  - Therapy cessation [None]
  - Constipation [None]
  - Energy increased [None]
  - Condition aggravated [None]
  - Gait disturbance [None]
  - Cerebellar syndrome [None]
  - Injection site reaction [None]
  - Pain [None]
  - Hyporeflexia [None]
  - Pyrexia [Recovered/Resolved]
  - Confusional state [None]
  - Asthenia [None]
  - Gait inability [None]
  - Extensor plantar response [None]
  - Ataxia [None]
  - Motor dysfunction [None]
  - Diarrhoea [Recovered/Resolved]
  - Hypoaesthesia [None]
  - Anaemia [None]
  - Urinary tract infection [None]

NARRATIVE: CASE EVENT DATE: 2015
